FAERS Safety Report 12920107 (Version 1)
Quarter: 2016Q4

REPORT INFORMATION
  Report Type: Spontaneous
  Country: FR (occurrence: FR)
  Receive Date: 20161107
  Receipt Date: 20161107
  Transmission Date: 20170207
  Serious: Yes (Hospitalization, Other)
  Sender: FDA-Public Use
  Company Number: FR-ELI_LILLY_AND_COMPANY-FR201610008315

PATIENT
  Age: 80 Year
  Sex: Male
  Weight: 74.9 kg

DRUGS (1)
  1. ALIMTA [Suspect]
     Active Substance: PEMETREXED DISODIUM
     Indication: LUNG ADENOCARCINOMA STAGE IV
     Dosage: 975 MG, CYCLICAL
     Route: 042
     Dates: start: 20160715

REACTIONS (17)
  - C-reactive protein increased [Recovered/Resolved]
  - Productive cough [Unknown]
  - Bacterial disease carrier [Unknown]
  - Diarrhoea [Unknown]
  - Abdominal pain [Unknown]
  - Systemic inflammatory response syndrome [Recovered/Resolved]
  - Feeling hot [Unknown]
  - Diabetes mellitus inadequate control [Unknown]
  - Aplastic anaemia [Recovered/Resolved]
  - Pain [Unknown]
  - Malignant neoplasm progression [Unknown]
  - Leukocyturia [Unknown]
  - Pyrexia [Recovered/Resolved]
  - General physical health deterioration [Unknown]
  - Neutropenia [Recovered/Resolved]
  - Dyspnoea [Unknown]
  - Leukopenia [Unknown]

NARRATIVE: CASE EVENT DATE: 20160720
